FAERS Safety Report 19808141 (Version 1)
Quarter: 2021Q3

REPORT INFORMATION
  Report Type: Spontaneous
  Country: FR (occurrence: FR)
  Receive Date: 20210909
  Receipt Date: 20210909
  Transmission Date: 20211014
  Serious: Yes (Hospitalization)
  Sender: FDA-Public Use
  Company Number: FR-TEVA-2021-FR-1949683

PATIENT
  Age: 85 Year
  Sex: Male

DRUGS (2)
  1. GABAPENTINE [Suspect]
     Active Substance: GABAPENTIN
     Dosage: 3X / D:UNIT DOSE:300MILLIGRAM
     Route: 048
     Dates: start: 20210212, end: 20210403
  2. GABAPENTINE [Suspect]
     Active Substance: GABAPENTIN
     Dosage: 3X / D:UNIT DOSE:600MILLIGRAM
     Route: 048
     Dates: start: 20210211, end: 20210212

REACTIONS (3)
  - Confusional state [Recovering/Resolving]
  - Withdrawal syndrome [Recovering/Resolving]
  - Myoclonus [Recovered/Resolved]

NARRATIVE: CASE EVENT DATE: 20210412
